FAERS Safety Report 24005412 (Version 1)
Quarter: 2024Q2

REPORT INFORMATION
  Report Type: Spontaneous
  Country: CN (occurrence: CN)
  Receive Date: 20240624
  Receipt Date: 20240624
  Transmission Date: 20240716
  Serious: Yes (Hospitalization)
  Sender: FDA-Public Use
  Company Number: CN-002147023-NVSC2024CN130162

PATIENT
  Sex: Male

DRUGS (1)
  1. COSENTYX [Suspect]
     Active Substance: SECUKINUMAB
     Indication: Product used for unknown indication
     Dosage: UNK
     Route: 065
     Dates: start: 20240401

REACTIONS (7)
  - Leukaemia [Unknown]
  - Petechiae [Unknown]
  - Gingival bleeding [Unknown]
  - Eye haemorrhage [Unknown]
  - Asthenia [Unknown]
  - Pharyngeal swelling [Unknown]
  - Haematuria [Unknown]

NARRATIVE: CASE EVENT DATE: 20240501
